FAERS Safety Report 7555491-4 (Version None)
Quarter: 2011Q2

REPORT INFORMATION
  Report Type: 
  Country: None (occurrence: None)
  Receive Date: 20110617
  Receipt Date: 20110615
  Transmission Date: 20111010
  Serious: Yes (Other)
  Sender: FDA-Public Use
  Company Number: US-PFIZER INC-2011132134

PATIENT
  Sex: Male

DRUGS (1)
  1. NEURONTIN [Suspect]
     Dosage: UNK

REACTIONS (3)
  - HEART RATE DECREASED [None]
  - HYPOTENSION [None]
  - BLOOD CREATINE INCREASED [None]
